FAERS Safety Report 6230986-4 (Version None)
Quarter: 2009Q2

REPORT INFORMATION
  Report Type: 
  Country: None (occurrence: None)
  Receive Date: 20090616
  Receipt Date: 20090608
  Transmission Date: 20091009
  Serious: Yes (Other)
  Sender: FDA-Public Use
  Company Number: NL-BAYER-200913164GPV

PATIENT
  Sex: Female

DRUGS (1)
  1. YASMIN [Suspect]
     Indication: RHEUMATOID ARTHRITIS
     Dosage: NOS
     Route: 048

REACTIONS (1)
  - OTOSCLEROSIS [None]
